FAERS Safety Report 6266584-6 (Version None)
Quarter: 2009Q3

REPORT INFORMATION
  Report Type: 
  Country: None (occurrence: None)
  Receive Date: 20090710
  Receipt Date: 20090702
  Transmission Date: 20100115
  Serious: Yes (Death, Life-Threatening, Hospitalization)
  Sender: FDA-Public Use
  Company Number: 316409

PATIENT
  Age: 75 Year
  Sex: Male

DRUGS (10)
  1. CYTARABINE [Suspect]
     Indication: ACUTE MYELOID LEUKAEMIA
     Dosage: 37.4 MG, 1 IN 1 DAY, SUBCUTANEOUS
     Route: 058
     Dates: start: 20081017, end: 20081026
  2. CALCIUM [Concomitant]
  3. FENOFIBRATE [Concomitant]
  4. GUAIFENESIN [Concomitant]
  5. MULTIPLE VITAMINS [Concomitant]
  6. TAMSULOSIN HYDROCHLORIDE [Concomitant]
  7. FOLIC ACID [Concomitant]
  8. PARACETAMOL [Concomitant]
  9. ALPRAZOLAM [Concomitant]
  10. TEMAZEPAM [Concomitant]

REACTIONS (12)
  - ACUTE MYELOID LEUKAEMIA [None]
  - BACTERAEMIA [None]
  - CLOSTRIDIAL INFECTION [None]
  - DEHYDRATION [None]
  - DELIRIUM [None]
  - DIARRHOEA [None]
  - DISEASE PROGRESSION [None]
  - DRUG INEFFECTIVE [None]
  - FEBRILE NEUTROPENIA [None]
  - LOBAR PNEUMONIA [None]
  - ORTHOSTATIC HYPOTENSION [None]
  - PANCYTOPENIA [None]
